FAERS Safety Report 4582391-4 (Version None)
Quarter: 2005Q1

REPORT INFORMATION
  Report Type: 
  Country: None (occurrence: None)
  Receive Date: 20050119
  Receipt Date: 20040127
  Transmission Date: 20050727
  Serious: Yes (Other)
  Sender: FDA-Public Use
  Company Number: US-JNJFOC-20040105396

PATIENT
  Age: 67 Year
  Sex: Female
  Weight: 52.1637 kg

DRUGS (3)
  1. DOXIL [Suspect]
     Indication: OVARIAN CANCER
     Dosage: 30 MG/M2, INTRAVENOUS
     Route: 042
     Dates: start: 20020401, end: 20020701
  2. CARBOPLATIN [Suspect]
     Indication: OVARIAN CANCER
     Dosage: 8 CYCLES
  3. PACLITAXEL [Suspect]
     Indication: OVARIAN CANCER
     Dosage: 8 CYCLES
     Dates: start: 20020401, end: 20020701

REACTIONS (1)
  - DISEASE PROGRESSION [None]
